FAERS Safety Report 9880818 (Version 1)
Quarter: 2014Q1

REPORT INFORMATION
  Report Type: Spontaneous
  Country: US (occurrence: None)
  Receive Date: 20140206
  Receipt Date: 20140206
  Transmission Date: 20141002
  Serious: Yes (Other)
  Sender: FDA-Public Use
  Company Number: None

PATIENT
  Age: 60 Year
  Sex: Male
  Weight: 122.47 kg

DRUGS (9)
  1. NAROPIN [Suspect]
     Indication: NERVE BLOCK
     Dates: start: 20140129, end: 20140129
  2. NAROPIN [Suspect]
     Indication: PROCEDURAL PAIN
     Dates: start: 20140129, end: 20140129
  3. FENTANYL [Concomitant]
  4. MIDAZOLAM [Concomitant]
  5. PROPOFOL [Concomitant]
  6. ROCURONIUM [Concomitant]
  7. NEOSTIGMINE [Concomitant]
  8. GLYCOPYRROLATE [Concomitant]
  9. SEVOFLURANE [Concomitant]

REACTIONS (1)
  - Axillary pain [None]
